FAERS Safety Report 19114884 (Version 1)
Quarter: 2021Q2

REPORT INFORMATION
  Report Type: Report from Study
  Country: GB (occurrence: GB)
  Receive Date: 20210409
  Receipt Date: 20210409
  Transmission Date: 20210717
  Serious: Yes (Other)
  Sender: FDA-Public Use
  Company Number: GB-ACCORD-222306

PATIENT
  Age: 66 Year
  Sex: Female

DRUGS (2)
  1. METHOTREXATE. [Suspect]
     Active Substance: METHOTREXATE
     Indication: PRODUCT USED FOR UNKNOWN INDICATION
     Dosage: UNKNOWN DOSE AND FREQUENCY VIA AN UNKNOWN ROUTE
     Route: 065
  2. BENEPALI [Suspect]
     Active Substance: ETANERCEPT
     Indication: RHEUMATOID ARTHRITIS
     Route: 058

REACTIONS (9)
  - Obesity [Unknown]
  - Dysstasia [Unknown]
  - Incontinence [Unknown]
  - Urinary tract infection [Unknown]
  - Poor quality sleep [Unknown]
  - Arthralgia [Unknown]
  - Spinal pain [Unknown]
  - Mobility decreased [Unknown]
  - Alopecia [Unknown]
